FAERS Safety Report 7809052-X (Version None)
Quarter: 2011Q4

REPORT INFORMATION
  Report Type: 
  Country: None (occurrence: None)
  Receive Date: 20111012
  Receipt Date: 20110111
  Transmission Date: 20120403
  Serious: Yes (Life-Threatening, Hospitalization, Other)
  Sender: FDA-Public Use
  Company Number: GB-UCBSA-025421

PATIENT
  Age: 34 Year
  Sex: Male

DRUGS (8)
  1. TEMAZEPAM [Suspect]
     Dosage: 120 MG TEMAZEPAM
  2. ETHYLENE GLYCOL [Suspect]
     Dosage: 500 ML ANTI-FREEZE SOLUTION
  3. PERINDOPRIL ERBUMINE [Suspect]
  4. AMLODIPINE [Suspect]
  5. CITALOPRAM [Suspect]
     Dosage: 240 MG CITALOPRAM
  6. DIAZEPAM [Suspect]
     Dosage: 140 MG DIAZEPAM
  7. ACETAMINOPHEN AND CODEINE PHOSPHATE [Suspect]
  8. DOXAZOSIN MESYLATE [Suspect]

REACTIONS (6)
  - HYPOTENSION [None]
  - MULTIPLE DRUG OVERDOSE [None]
  - LOSS OF CONSCIOUSNESS [None]
  - METABOLIC ACIDOSIS [None]
  - HYPERCALCIURIA [None]
  - HYPOXIA [None]
